FAERS Safety Report 8565936 (Version 3)
Quarter: 2013Q4

REPORT INFORMATION
  Report Type: Spontaneous
  Country: US (occurrence: US)
  Receive Date: 20120516
  Receipt Date: 20131213
  Transmission Date: 20140711
  Serious: Yes (Hospitalization, Other)
  Sender: FDA-Public Use
  Company Number: US-BAYER-2012-047901

PATIENT
  Age: 27 Year
  Sex: Female
  Weight: 63.49 kg

DRUGS (7)
  1. YAZ [Suspect]
     Indication: CONTRACEPTION
     Dosage: UNK
     Dates: start: 201004, end: 201007
  2. IBUPROFEN [Concomitant]
     Dosage: 800 MG, UNK
     Route: 048
  3. TRAMADOL [Concomitant]
     Dosage: 50 MG ONE Q (EVERY) 4-6 HOURS
     Route: 048
  4. HYDROCODONE/ACETAMINOPHEN [Concomitant]
     Dosage: 5 MG-500 MG 1-2 Q 6 H (HOURS) PRN (AS NEEDED)
     Route: 048
  5. MELOXICAM [Concomitant]
     Dosage: 7.5 MG ONE TAB QD (DAILY)
     Route: 048
  6. ACETAMINOPHEN [Concomitant]
     Dosage: 325 MG 1-2 Q 4-6 H PRN
     Route: 048
  7. ESOMEPRAZOLE MAGNESIUM [Concomitant]
     Dosage: 20 MG, UNK
     Route: 048

REACTIONS (5)
  - Cholecystectomy [None]
  - Pain [None]
  - Emotional distress [None]
  - Food intolerance [None]
  - Biliary dyskinesia [None]
